FAERS Safety Report 6122615-5 (Version None)
Quarter: 2009Q1

REPORT INFORMATION
  Report Type: 
  Country: None (occurrence: None)
  Receive Date: 20090316
  Receipt Date: 20090226
  Transmission Date: 20090719
  Serious: No
  Sender: FDA-Public Use
  Company Number: PPC200900010

PATIENT
  Age: 31 Year
  Sex: Female

DRUGS (1)
  1. ADENOSINE [Suspect]
     Indication: TACHYCARDIA
     Dosage: 3 MG, RAPID BOLUS, INTRAVENOUS ; 6 MG, RAPID BOLUS, INTRAVENOUS ; 12 MG, RAPID BOLUS, INTRAVENOUS
     Route: 042

REACTIONS (4)
  - ATRIAL FIBRILLATION [None]
  - DRUG INEFFECTIVE [None]
  - VENTRICULAR PRE-EXCITATION [None]
  - WOLFF-PARKINSON-WHITE SYNDROME [None]
